FAERS Safety Report 8765727 (Version 1)
Quarter: 2012Q4

REPORT INFORMATION
  Report Type: 
  Country: US (occurrence: US)
  Receive Date: 20120904
  Receipt Date: 20120904
  Transmission Date: 20130627
  Serious: Yes (Disabling)
  Sender: FDA-Public Use
  Company Number: US-BAYER-2012-089648

PATIENT
  Age: 42 Year
  Sex: Female

DRUGS (11)
  1. BETASERON [Suspect]
     Dosage: 0.25 ml, QOD
     Route: 058
  2. BETASERON [Suspect]
     Dosage: 0.5 ml, QOD
     Route: 058
  3. BETASERON [Suspect]
     Dosage: 0.75 ml, QOD
     Route: 058
  4. BETASERON [Suspect]
     Dosage: 1 ml, QOD
     Route: 058
  5. EFFEXOR [Concomitant]
     Dosage: 37.5 mg, UNK
  6. AMBIEN [Concomitant]
     Dosage: 5 mg, UNK
  7. ULTRAM ER [Concomitant]
     Dosage: 200 mg, UNK
  8. GABAPENTIN [Concomitant]
     Dosage: 100 mg, UNK
  9. METFORMIN [Concomitant]
     Dosage: 850 mg, UNK
  10. BACLOFEN [Concomitant]
     Dosage: 20 mg, UNK
  11. NUVIGIL [Concomitant]
     Dosage: 250 mg, UNK

REACTIONS (3)
  - Blindness [Unknown]
  - Muscle spasms [Unknown]
  - Memory impairment [Unknown]
